FAERS Safety Report 6037463-4 (Version None)
Quarter: 2009Q1

REPORT INFORMATION
  Report Type: 
  Country: None (occurrence: None)
  Receive Date: 20090114
  Receipt Date: 20090112
  Transmission Date: 20090719
  Serious: Yes (Hospitalization)
  Sender: FDA-Public Use
  Company Number: FR-WYE-G02914809

PATIENT
  Age: 29 Year
  Sex: Male

DRUGS (3)
  1. TAZOCILLINE [Suspect]
     Indication: SEPSIS
     Dosage: UNKNOWN
     Route: 042
     Dates: start: 20080930, end: 20081002
  2. AMIKLIN [Suspect]
     Indication: SEPSIS
     Dosage: UNKNOWN
     Route: 042
     Dates: start: 20080930, end: 20080101
  3. TARGOCID [Suspect]
     Indication: SEPSIS
     Dosage: UNKNOWN
     Route: 042
     Dates: start: 20080930, end: 20081002

REACTIONS (3)
  - CONDITION AGGRAVATED [None]
  - HYPOKALAEMIA [None]
  - STATUS EPILEPTICUS [None]
